FAERS Safety Report 18171490 (Version 2)
Quarter: 2020Q3

REPORT INFORMATION
  Report Type: Report from Study
  Country: ES (occurrence: ES)
  Receive Date: 20200819
  Receipt Date: 20200821
  Transmission Date: 20201103
  Serious: Yes (Life-Threatening, Hospitalization, Other)
  Sender: FDA-Public Use
  Company Number: ES-MORPHOSYS US-2020-MOR000550-ES

PATIENT
  Age: 40 Year
  Sex: Male
  Weight: 107 kg

DRUGS (22)
  1. FUROSEMIDE. [Concomitant]
     Active Substance: FUROSEMIDE
     Indication: OEDEMA PERIPHERAL
     Dosage: 40 MG, QD
     Route: 048
     Dates: start: 20200605, end: 20200705
  2. METAMIZOL [Concomitant]
     Active Substance: METAMIZOLE SODIUM
     Indication: PAIN
     Dosage: 1 AMPULE, PRN
     Route: 042
     Dates: start: 20200605, end: 20200610
  3. ACICLOVIR [Concomitant]
     Active Substance: ACYCLOVIR
     Indication: PROPHYLAXIS
     Dosage: 400 MG, BID
     Route: 048
     Dates: start: 20200608, end: 20200619
  4. TAFASITAMAB [Suspect]
     Active Substance: TAFASITAMAB
     Dosage: 12 MG/KG
     Route: 042
     Dates: start: 20200708, end: 20200708
  5. ENOXAPARIN [Concomitant]
     Active Substance: ENOXAPARIN
     Indication: THROMBOSIS PROPHYLAXIS
     Dosage: 80 MG, QD
     Route: 058
     Dates: start: 20200603
  6. R?CHOP [Suspect]
     Active Substance: CYCLOPHOSPHAMIDE\DOXORUBICIN\PREDNISONE\RITUXIMAB\VINCRISTINE
     Indication: DIFFUSE LARGE B-CELL LYMPHOMA
     Dosage: UNK
     Route: 042
     Dates: start: 20200608
  7. DOLANTINA [Concomitant]
     Active Substance: MEPERIDINE HYDROCHLORIDE
     Indication: PAIN
     Dosage: 0.5 AMPULE, TID
     Route: 058
     Dates: start: 20200605, end: 20200610
  8. ALLOPURINOL. [Concomitant]
     Active Substance: ALLOPURINOL
     Indication: TUMOUR LYSIS SYNDROME
     Dosage: 300 MG, QD
     Route: 048
     Dates: start: 20200608, end: 20200611
  9. TAFASITAMAB [Suspect]
     Active Substance: TAFASITAMAB
     Dosage: 12 MG/KG
     Route: 042
     Dates: start: 20200615, end: 20200615
  10. LENALIDOMIDE [Suspect]
     Active Substance: LENALIDOMIDE
     Dosage: 25 MG, QD
     Route: 048
     Dates: start: 20200701, end: 20200710
  11. DEXTROSE 5% IN SODIUM CHLORIDE 0,9% [Concomitant]
     Indication: PROPHYLAXIS AGAINST DEHYDRATION
     Dosage: 2000 ML, QD
     Route: 042
     Dates: start: 20200603, end: 20200620
  12. OMEPRAZOLE. [Concomitant]
     Active Substance: OMEPRAZOLE
     Indication: GASTROINTESTINAL DISORDER PROPHYLAXIS
     Dosage: 40 MG, QD
     Route: 048
     Dates: start: 20200603, end: 20200618
  13. RASBURICASE [Concomitant]
     Active Substance: RASBURICASE
     Indication: PROPHYLAXIS
     Dosage: 21.4 MG, QD
     Route: 042
     Dates: start: 20200603, end: 20200607
  14. SODIUM BICARBONATE. [Concomitant]
     Active Substance: SODIUM BICARBONATE
     Indication: TUMOUR LYSIS SYNDROME
     Dosage: 40 MEQ, QD
     Route: 042
     Dates: start: 20200603, end: 20200611
  15. NYSTATINA [Concomitant]
     Indication: DENTAL DISORDER PROPHYLAXIS
     Dosage: 1 RINSE, TID
     Route: 048
     Dates: start: 20200603
  16. KCL [Concomitant]
     Active Substance: POTASSIUM CHLORIDE
     Indication: HYPOKALAEMIA
     Dosage: 30 MEQ, CONTINOUS INFUSION
     Route: 042
     Dates: start: 20200607, end: 20200620
  17. GRANISETRON [Concomitant]
     Active Substance: GRANISETRON
     Indication: PROPHYLAXIS OF NAUSEA AND VOMITING
     Dosage: 1 MG, BID
     Route: 042
     Dates: start: 20200608, end: 20200610
  18. TAFASITAMAB [Suspect]
     Active Substance: TAFASITAMAB
     Indication: DIFFUSE LARGE B-CELL LYMPHOMA
     Dosage: 12 MG/KG
     Route: 042
     Dates: start: 20200608, end: 20200608
  19. LORAZEPAM. [Concomitant]
     Active Substance: LORAZEPAM
     Indication: PROPHYLAXIS
     Dosage: 1 MG, QD
     Route: 048
     Dates: start: 20200603, end: 20200618
  20. ORALDINE [Concomitant]
     Indication: DENTAL DISORDER PROPHYLAXIS
     Dosage: 1 RINSE, TID
     Route: 048
     Dates: start: 20200603
  21. TAFASITAMAB [Suspect]
     Active Substance: TAFASITAMAB
     Dosage: 12 MG/KG
     Route: 042
     Dates: start: 20200701, end: 20200701
  22. LENALIDOMIDE [Suspect]
     Active Substance: LENALIDOMIDE
     Indication: DIFFUSE LARGE B-CELL LYMPHOMA
     Dosage: 25 MG, QD
     Route: 048
     Dates: start: 20200608, end: 20200617

REACTIONS (2)
  - Cytomegalovirus infection [Recovered/Resolved]
  - Pneumocystis jirovecii pneumonia [Recovered/Resolved]

NARRATIVE: CASE EVENT DATE: 20200605
